FAERS Safety Report 19910055 (Version 1)
Quarter: 2021Q4

REPORT INFORMATION
  Report Type: Spontaneous
  Country: FR (occurrence: FR)
  Receive Date: 20211003
  Receipt Date: 20211003
  Transmission Date: 20220303
  Serious: Yes (Hospitalization)
  Sender: FDA-Public Use
  Company Number: None

PATIENT
  Age: 40 Year
  Sex: Female
  Weight: 44 kg

DRUGS (2)
  1. CEFTRIAXONE SODIUM [Suspect]
     Active Substance: CEFTRIAXONE SODIUM
     Indication: Endocarditis
     Dosage: 4 G, QD
     Route: 042
     Dates: start: 20210803, end: 20210906
  2. AMOXICILLIN [Concomitant]
     Active Substance: AMOXICILLIN
     Indication: Endocarditis
     Dosage: 1 G, QD
     Route: 042

REACTIONS (2)
  - Motor dysfunction [Recovered/Resolved]
  - Hypoaesthesia [Recovered/Resolved]

NARRATIVE: CASE EVENT DATE: 20210906
